FAERS Safety Report 16984034 (Version 1)
Quarter: 2019Q4

REPORT INFORMATION
  Report Type: Spontaneous
  Country: BR (occurrence: BR)
  Receive Date: 20191101
  Receipt Date: 20191101
  Transmission Date: 20200122
  Serious: Yes (Death, Other)
  Sender: FDA-Public Use
  Company Number: BR-PFIZER INC-2019469892

PATIENT
  Age: 67 Year
  Sex: Female
  Weight: 54 kg

DRUGS (32)
  1. ZOLTEC [Suspect]
     Active Substance: FLUCONAZOLE
     Dosage: 200 MG, EVERY 12 HOURS
     Route: 042
     Dates: start: 20170523, end: 20170609
  2. FUROSEMIDE. [Concomitant]
     Active Substance: FUROSEMIDE
     Dosage: 40 MG, EVERY 6 HOURS
     Route: 042
     Dates: start: 20170601
  3. HYDROCORTISONE. [Concomitant]
     Active Substance: HYDROCORTISONE
     Dosage: 100 MG, EVERY 12 HOURS
     Route: 042
     Dates: start: 20170605
  4. FERRIC HYDROXIDE [Concomitant]
     Active Substance: FERRIC HYDROXIDE
     Dosage: 100 MG, 1X/DAY
     Route: 042
     Dates: start: 20170523
  5. LEVOTHYROXINE. [Concomitant]
     Active Substance: LEVOTHYROXINE
     Dosage: 25 UG, 1X/DAY
     Route: 048
     Dates: start: 20170602
  6. MORPHINE [Concomitant]
     Active Substance: MORPHINE
     Dosage: 4 MG, EVERY 4 HOURS
     Route: 042
     Dates: start: 20170517
  7. TOCOPHEROL [Concomitant]
     Active Substance: TOCOPHEROL
     Dosage: 400 MG, 1X/DAY
     Route: 061
     Dates: start: 20170605
  8. MEROPENEM. [Concomitant]
     Active Substance: MEROPENEM
     Dosage: 1 G, EVERY 8 HOURS
     Route: 042
     Dates: start: 20170602
  9. PROPOFOL. [Concomitant]
     Active Substance: PROPOFOL
     Dosage: 20 ML, SINGLE DOSE
     Route: 042
     Dates: start: 20170606
  10. BROMOPRIDE [Concomitant]
     Active Substance: BROMOPRIDE
     Dosage: 10 MG, EVERY 8 HOURS
     Route: 042
     Dates: start: 20170608
  11. CASPOFUNGIN [Concomitant]
     Active Substance: CASPOFUNGIN
     Dosage: 50 MG, EVERY 12 HOURS
     Route: 042
     Dates: start: 20170609
  12. CISATRACURIUM. [Concomitant]
     Active Substance: CISATRACURIUM
     Dosage: 10 MG, SINGLE DOSE
     Route: 042
     Dates: start: 20170606
  13. HALOPERIDOL. [Concomitant]
     Active Substance: HALOPERIDOL
     Dosage: 5 MG, 1X/DAY
     Route: 042
     Dates: start: 20170604
  14. MIRTAZAPINE. [Concomitant]
     Active Substance: MIRTAZAPINE
     Dosage: 30 MG, 1X/DAY
     Route: 048
     Dates: start: 20170517
  15. TRAMADOL. [Concomitant]
     Active Substance: TRAMADOL
     Dosage: 25 MG, EVERY 6 HOURS
     Route: 042
     Dates: start: 20170527
  16. CASPOFUNGIN [Concomitant]
     Active Substance: CASPOFUNGIN
     Dosage: 70 MG, SINGLE DOSE
     Dates: start: 20170609
  17. FENTANYL. [Concomitant]
     Active Substance: FENTANYL
     Dosage: 1000 UG, SINGLE
     Route: 042
     Dates: start: 20170606
  18. FILGRASTIMA [Concomitant]
     Active Substance: FILGRASTIM
     Dosage: 300 UG, SINGLE DOSE
     Route: 042
     Dates: start: 20170609
  19. RANITIDINE. [Concomitant]
     Active Substance: RANITIDINE
     Dosage: 50 MG, EVERY 8 HOURS
     Route: 042
     Dates: start: 20170608
  20. DIPYRONE [Concomitant]
     Active Substance: DIPYRONE
     Dosage: 1 G, EVERY 6 HOURS
     Route: 042
     Dates: start: 20170517
  21. FLUOXETINE [Concomitant]
     Active Substance: FLUOXETINE HYDROCHLORIDE
     Dosage: 20 MG, 1X/DAY
     Route: 048
     Dates: start: 20170526
  22. HUMAN ALBUMIN [Concomitant]
     Active Substance: ALBUMIN HUMAN
     Dosage: 50 ML, EVERY 6 HOURS
     Route: 042
     Dates: start: 20170605
  23. CLONAZEPAM. [Concomitant]
     Active Substance: CLONAZEPAM
     Dosage: 0.5 MG, SINGLE DOSE
     Route: 048
     Dates: start: 20170604
  24. DIMENHYDRINATE/FRUCTOSE/GLUCOSE/PYRIDOXINE [Concomitant]
     Dosage: 10 ML, EVERY 6 HOURS
     Route: 042
     Dates: start: 20170527
  25. ENOXAPARIN [Concomitant]
     Active Substance: ENOXAPARIN
     Dosage: 40 MG, 1X/DAY
     Route: 058
     Dates: start: 20170517
  26. LINEZOLID. [Concomitant]
     Active Substance: LINEZOLID
     Dosage: 600 MG, EVERY 12 HOURS
     Route: 042
     Dates: start: 20170602
  27. METHADONE [Concomitant]
     Active Substance: METHADONE HYDROCHLORIDE
     Dosage: 4 MG, EVERY 8 HOURS
     Route: 042
     Dates: start: 20170520
  28. PIPERACILLIN AND TAZOBACTAM [Concomitant]
     Active Substance: PIPERACILLIN SODIUM\TAZOBACTAM SODIUM
     Dosage: 4.5 MG, EVERY 6 HOURS
     Route: 042
     Dates: start: 20170517
  29. VANCOMYCIN [Concomitant]
     Active Substance: VANCOMYCIN
     Dosage: 1000 MG, EVERY 12 HOURS
     Route: 042
     Dates: start: 20170521
  30. VENLAFAXINE [Concomitant]
     Active Substance: VENLAFAXINE HYDROCHLORIDE
     Dosage: 75 MG, 1X/DAY
     Route: 048
     Dates: start: 20170602
  31. ESOMEPRAZOLE. [Concomitant]
     Active Substance: ESOMEPRAZOLE MAGNESIUM
     Dosage: 40 MG, 1X/DAY
     Route: 042
     Dates: start: 20170517
  32. ONDANSETRON [Concomitant]
     Active Substance: ONDANSETRON
     Dosage: 4 MG, EVERY 6 HOURS
     Route: 042
     Dates: start: 20170527

REACTIONS (2)
  - Shock [Fatal]
  - Toxic epidermal necrolysis [Recovering/Resolving]

NARRATIVE: CASE EVENT DATE: 20170608
